FAERS Safety Report 19042948 (Version 1)
Quarter: 2021Q1

REPORT INFORMATION
  Report Type: Spontaneous
  Country: AT (occurrence: AT)
  Receive Date: 20210323
  Receipt Date: 20210323
  Transmission Date: 20210420
  Serious: Yes (Life-Threatening, Hospitalization)
  Sender: FDA-Public Use
  Company Number: AT-STRIDES ARCOLAB LIMITED-2021SP003399

PATIENT
  Age: 53 Year
  Sex: Female

DRUGS (2)
  1. ZOLPIDEM [Suspect]
     Active Substance: ZOLPIDEM TARTRATE
     Indication: INSOMNIA
     Dosage: 9000 MILLIGRAM (30 BOTTLES OF 30ML OF ORAL SOLUTION EACH CONTAINING 10 MG/ML OF ACTIVE INGREDIENT)
     Route: 048
  2. ALPRAZOLAM. [Suspect]
     Active Substance: ALPRAZOLAM
     Indication: INSOMNIA
     Dosage: UNK
     Route: 048

REACTIONS (6)
  - Coma [Recovered/Resolved]
  - Suicide attempt [Unknown]
  - Toxicity to various agents [Recovered/Resolved]
  - Encephalopathy [Recovered/Resolved]
  - Transaminases increased [Unknown]
  - Intentional overdose [Unknown]
